FAERS Safety Report 7864052-9 (Version None)
Quarter: 2011Q4

REPORT INFORMATION
  Report Type: 
  Country: None (occurrence: None)
  Receive Date: 20111028
  Receipt Date: 20111026
  Transmission Date: 20120403
  Serious: Yes (Life-Threatening, Hospitalization)
  Sender: FDA-Public Use
  Company Number: FR-JNJFOC-20111011726

PATIENT
  Age: 62 Year
  Sex: Female

DRUGS (4)
  1. MIDAZOLAM HCL [Suspect]
     Indication: PRODUCT USED FOR UNKNOWN INDICATION
     Route: 042
     Dates: start: 20110825, end: 20110825
  2. LEVOFLOXACIN [Suspect]
     Indication: PROPHYLAXIS
     Route: 048
     Dates: start: 20110824, end: 20110825
  3. CLONIDINE [Concomitant]
     Indication: PROPHYLAXIS
     Route: 065
     Dates: start: 20110824
  4. BENOXINATE HYDROCHLORIDE [Concomitant]
     Indication: LOCAL ANAESTHESIA
     Route: 065
     Dates: start: 20110825, end: 20110825

REACTIONS (6)
  - OXYGEN SATURATION DECREASED [None]
  - DYSPNOEA [None]
  - CYANOSIS [None]
  - HYPERSENSITIVITY [None]
  - AGITATION [None]
  - BRADYCARDIA [None]
